FAERS Safety Report 24438583 (Version 1)
Quarter: 2024Q4

REPORT INFORMATION
  Report Type: Spontaneous
  Country: US (occurrence: None)
  Receive Date: 20241013
  Receipt Date: 20241013
  Transmission Date: 20250114
  Serious: No
  Sender: Public
  Company Number: None

PATIENT
  Age: 64 Year
  Sex: Female
  Weight: 90 kg

DRUGS (5)
  1. NITROFURANTOIN MONOHYDRATE MACROCRYSTALS [Suspect]
     Active Substance: NITROFURANTOIN\NITROFURANTOIN MONOHYDRATE
     Indication: Escherichia infection
     Dosage: OTHER QUANTITY : 1 CAPSULE(S);?FREQUENCY : TWICE A DAY;?
     Route: 048
     Dates: start: 20241010, end: 20241013
  2. CETIRIZINE [Concomitant]
     Active Substance: CETIRIZINE HYDROCHLORIDE
  3. CITALOPRAM [Concomitant]
     Active Substance: CITALOPRAM
  4. IBUPROFEN [Concomitant]
     Active Substance: IBUPROFEN
  5. FISH OIL [Concomitant]
     Active Substance: FISH OIL

REACTIONS (8)
  - Dyspnoea [None]
  - Headache [None]
  - Nausea [None]
  - Fatigue [None]
  - Bone pain [None]
  - Arthralgia [None]
  - Myalgia [None]
  - Feeling abnormal [None]

NARRATIVE: CASE EVENT DATE: 20241012
